FAERS Safety Report 11281099 (Version 1)
Quarter: 2015Q3

REPORT INFORMATION
  Report Type: Report from Study
  Country: BR (occurrence: BR)
  Receive Date: 20150717
  Receipt Date: 20150717
  Transmission Date: 20151125
  Serious: Yes (Death, Hospitalization)
  Sender: FDA-Public Use
  Company Number: BR-PFIZER INC-2015232635

PATIENT
  Age: 82 Year
  Sex: Male

DRUGS (3)
  1. POLYMYXIN B. [Suspect]
     Active Substance: POLYMYXIN B
     Indication: BACTERIAL INFECTION
     Dosage: 500 MG/20 DAYS
  2. AMPICILLIN SODIUM/SULBACTAM SODIUM [Suspect]
     Active Substance: AMPICILLIN SODIUM\SULBACTAM SODIUM
     Indication: BACTERIAL INFECTION
     Dosage: 4 G, UNK
  3. COLISTIN [Suspect]
     Active Substance: COLISTIN
     Indication: BACTERIAL INFECTION
     Dosage: 500 MG/20 DAYS

REACTIONS (1)
  - Drug resistance [Fatal]
